FAERS Safety Report 8579686-6 (Version None)
Quarter: 2012Q3

REPORT INFORMATION
  Report Type: 
  Country: None (occurrence: None)
  Receive Date: 20120808
  Receipt Date: 20120731
  Transmission Date: 20120928
  Serious: Yes (Hospitalization, Other)
  Sender: FDA-Public Use
  Company Number: US-BAYER-2012-077105

PATIENT
  Age: 54 Year
  Sex: Female
  Weight: 55.782 kg

DRUGS (13)
  1. DOXYCYCLINE HCL [Suspect]
     Indication: NON-SMALL CELL LUNG CANCER
     Dosage: 100 MG, BID
     Route: 048
     Dates: start: 20120529, end: 20120620
  2. MS CONTIN [Suspect]
     Indication: PAIN
     Dosage: 15 MG, BID
     Route: 048
     Dates: start: 20120612, end: 20120612
  3. FOLIC ACID [Concomitant]
     Indication: CHEMOTHERAPY CYTOKINE PROPHYLAXIS
     Dosage: UNK
     Dates: start: 20111201
  4. DACOMITINIB [Suspect]
     Dosage: 45 MG, COHORTS I AND II DAILY CONTINOUS
     Dates: start: 20120626
  5. DACOMITINIB [Suspect]
     Indication: NON-SMALL CELL LUNG CANCER
     Dosage: 45 MG, COHORTS I AND II DAILY CONTINOUS
     Dates: start: 20120529, end: 20120618
  6. NAPROXEN (ALEVE) [Suspect]
     Indication: PAIN
     Dosage: 220 MG, BID
     Route: 048
     Dates: start: 20120612, end: 20120613
  7. VITAMIN E [Concomitant]
     Indication: ROUTINE HEALTH MAINTENANCE
     Dosage: UNK
     Dates: start: 19880101
  8. ASCORBIC ACID [Concomitant]
     Indication: ROUTINE HEALTH MAINTENANCE
     Dosage: UNK
     Dates: start: 19880101
  9. VITAMIN B-12 [Concomitant]
     Indication: ROUTINE HEALTH MAINTENANCE
     Dosage: UNK
     Dates: start: 19880101
  10. VITAMIN D [Concomitant]
     Indication: ROUTINE HEALTH MAINTENANCE
     Dosage: UNK
     Dates: start: 19880101
  11. PAMIDRONATE DISODIUM [Concomitant]
     Indication: METASTASES TO BONE
     Dosage: UNK
     Dates: start: 20110225
  12. THERAGRAN-M [Concomitant]
     Indication: ROUTINE HEALTH MAINTENANCE
     Dosage: UNK
     Dates: start: 19880101
  13. MOTRIN [Concomitant]
     Indication: MUSCULOSKELETAL PAIN
     Dosage: UNK
     Dates: start: 20120601, end: 20120612

REACTIONS (4)
  - DEHYDRATION [None]
  - NAUSEA [None]
  - RENAL FAILURE ACUTE [None]
  - DIARRHOEA [None]
